FAERS Safety Report 6682470-1 (Version None)
Quarter: 2010Q2

REPORT INFORMATION
  Report Type: 
  Country: None (occurrence: None)
  Receive Date: 20100415
  Receipt Date: 20100404
  Transmission Date: 20101027
  Serious: Yes (Other)
  Sender: FDA-Public Use
  Company Number: PHHY2010IL16167

PATIENT
  Age: 70 Year
  Sex: Female

DRUGS (6)
  1. ACLASTA [Suspect]
     Indication: OSTEOPOROSIS
     Dosage: 5 MG
     Route: 042
     Dates: start: 20090101
  2. ATENOLOL [Concomitant]
     Route: 048
  3. ASPIRIN [Concomitant]
     Route: 048
  4. CALCIUM [Concomitant]
     Route: 048
  5. DISOTHIAZIDE [Concomitant]
     Route: 048
  6. VITAMIN D3 [Concomitant]

REACTIONS (4)
  - CONJUNCTIVITIS [None]
  - LACRIMATION INCREASED [None]
  - OCULAR HYPERAEMIA [None]
  - RETINAL VEIN OCCLUSION [None]
